FAERS Safety Report 24553171 (Version 2)
Quarter: 2024Q4

REPORT INFORMATION
  Report Type: Spontaneous
  Country: GB (occurrence: GB)
  Receive Date: 20241028
  Receipt Date: 20241223
  Transmission Date: 20250114
  Serious: Yes (Hospitalization, Other)
  Sender: AMGEN
  Company Number: GB-PFIZER INC-PV202400136278

PATIENT
  Age: 73 Year
  Sex: Female

DRUGS (1)
  1. ENBREL [Suspect]
     Active Substance: ETANERCEPT
     Indication: Rheumatoid arthritis
     Dosage: 50 MG, WEEKLY
     Route: 058

REACTIONS (8)
  - Diarrhoea [Unknown]
  - Dizziness [Unknown]
  - Balance disorder [Unknown]
  - Fall [Unknown]
  - Contusion [Unknown]
  - Head injury [Unknown]
  - Escherichia infection [Unknown]
  - Urinary tract infection [Unknown]
